FAERS Safety Report 8217296 (Version 5)
Quarter: 2012Q4

REPORT INFORMATION
  Report Type: Report from Study
  Country: JP (occurrence: JP)
  Receive Date: 20111101
  Receipt Date: 20121128
  Transmission Date: 20130627
  Serious: Yes (Death, Life-Threatening, Other)
  Sender: FDA-Public Use
  Company Number: PHHY2011JP95731

PATIENT
  Age: 62 Year
  Sex: Male
  Weight: 49 kg

DRUGS (35)
  1. LEPONEX / CLOZARIL [Suspect]
     Indication: SCHIZOPHRENIA, PARANOID TYPE
     Dosage: 12.5 mg
     Route: 048
     Dates: start: 20100922, end: 20100922
  2. LEPONEX / CLOZARIL [Suspect]
     Dosage: 25 mg
     Route: 048
     Dates: start: 20100923, end: 20100923
  3. LEPONEX / CLOZARIL [Suspect]
     Dosage: 50 mg
     Route: 048
     Dates: start: 20100926, end: 20100928
  4. LEPONEX / CLOZARIL [Suspect]
     Dosage: 75 mg
     Route: 048
     Dates: start: 20100929, end: 20101001
  5. LEPONEX / CLOZARIL [Suspect]
     Dosage: 100 mg
     Route: 048
     Dates: start: 20101002, end: 20101005
  6. LEPONEX / CLOZARIL [Suspect]
     Dosage: 125 mg
     Route: 048
     Dates: start: 20101006, end: 20101012
  7. LEPONEX / CLOZARIL [Suspect]
     Dosage: 150 mg, UNK
     Route: 048
     Dates: start: 20101013, end: 20101026
  8. LEPONEX / CLOZARIL [Suspect]
     Dosage: 175 mg, UNK
     Route: 048
     Dates: start: 20101027, end: 20101102
  9. LEPONEX / CLOZARIL [Suspect]
     Dosage: 200 mg, UNK
     Route: 048
     Dates: start: 20101103, end: 20101112
  10. LEPONEX / CLOZARIL [Suspect]
     Dosage: 100 mg, UNK
     Route: 048
     Dates: start: 20101113, end: 20110111
  11. LEPONEX / CLOZARIL [Suspect]
     Dosage: 50 mg, UNK
     Route: 048
     Dates: start: 20110112, end: 20110113
  12. LEPONEX / CLOZARIL [Suspect]
     Dosage: 75 mg, UNK
     Route: 048
     Dates: start: 20110114, end: 20110215
  13. LEPONEX / CLOZARIL [Suspect]
     Dosage: 100 mg, UNK
     Route: 048
     Dates: start: 20110216, end: 20110329
  14. LEPONEX / CLOZARIL [Suspect]
     Dosage: 125 mg, UNK
     Route: 048
     Dates: start: 20110330, end: 20110517
  15. LEPONEX / CLOZARIL [Suspect]
     Dosage: 150 mg, UNK
     Route: 048
     Dates: start: 20110518, end: 20110607
  16. LEPONEX / CLOZARIL [Suspect]
     Dosage: 175 mg, UNK
     Route: 048
     Dates: start: 20110608, end: 20110614
  17. LEPONEX / CLOZARIL [Suspect]
     Dosage: 200 mg, UNK
     Route: 048
     Dates: start: 20110615, end: 20110809
  18. LEPONEX / CLOZARIL [Suspect]
     Dosage: 300 mg, UNK
     Route: 048
     Dates: start: 20110810, end: 20110906
  19. LEPONEX / CLOZARIL [Suspect]
     Dosage: 400 mg, Daily
     Route: 048
     Dates: start: 20110907, end: 20111004
  20. LEPONEX / CLOZARIL [Suspect]
     Dosage: 500 mg
     Route: 048
     Dates: start: 20111005, end: 20111020
  21. LEPONEX / CLOZARIL [Suspect]
     Dosage: 400 mg, UNK
     Route: 048
     Dates: start: 20111021, end: 20111023
  22. LEPONEX / CLOZARIL [Suspect]
     Dosage: 300 mg, UNK
     Route: 048
     Dates: start: 20111024, end: 20111024
  23. LEPONEX / CLOZARIL [Suspect]
     Dosage: UNK UKN, UNK
     Dates: end: 20111025
  24. LAMICTAL [Suspect]
     Indication: SCHIZOPHRENIA, PARANOID TYPE
     Dosage: UNK
     Dates: start: 20111001, end: 20111025
  25. LIMAS [Suspect]
     Indication: SCHIZOPHRENIA, PARANOID TYPE
     Dosage: 800 mg, Daily
     Route: 048
     Dates: start: 20100107, end: 20110112
  26. LIMAS [Suspect]
     Dosage: 1000 mg, Daily
     Route: 048
     Dates: start: 20110923, end: 20111023
  27. LIMAS [Suspect]
     Dosage: 600 mg, Daily
     Route: 048
     Dates: start: 20111024, end: 20111025
  28. ROHYPNOL [Concomitant]
     Indication: SCHIZOPHRENIA, PARANOID TYPE
     Dosage: 2 mg, UNK
     Route: 048
     Dates: end: 20111025
  29. ROZEREM [Concomitant]
     Indication: SCHIZOPHRENIA, PARANOID TYPE
     Dosage: 8 mg, UNK
     Route: 048
     Dates: start: 20100901, end: 20111025
  30. BIBITTOACE [Concomitant]
     Indication: SCHIZOPHRENIA, PARANOID TYPE
     Dosage: 2 mg, UNK
     Dates: end: 20110112
  31. FORSENID [Concomitant]
     Indication: CONSTIPATION
     Dosage: 8 mg, UNK
     Route: 048
     Dates: end: 20111025
  32. FORSENID [Concomitant]
     Dosage: 36 mg, UNK
     Route: 048
     Dates: end: 20111024
  33. HALCION [Concomitant]
     Indication: SCHIZOPHRENIA, PARANOID TYPE
     Dosage: 0.25 mg, UNK
     Route: 048
     Dates: start: 20111005, end: 20111024
  34. LEXIN [Concomitant]
     Indication: SCHIZOPHRENIA, PARANOID TYPE
     Dosage: 600 mg, UNK
     Route: 048
     Dates: start: 20111021, end: 20111024
  35. MEROPENEM [Concomitant]

REACTIONS (22)
  - Multi-organ failure [Fatal]
  - Shock [Fatal]
  - Depressed level of consciousness [Fatal]
  - Neuroleptic malignant syndrome [Fatal]
  - Pyrexia [Fatal]
  - Blood creatine phosphokinase increased [Fatal]
  - C-reactive protein increased [Fatal]
  - Osteomyelitis [Not Recovered/Not Resolved]
  - Fall [Not Recovered/Not Resolved]
  - Clavicle fracture [Not Recovered/Not Resolved]
  - Mania [Not Recovered/Not Resolved]
  - Hyperkinesia [Not Recovered/Not Resolved]
  - Logorrhoea [Unknown]
  - Insomnia [Unknown]
  - Pneumonia aspiration [Unknown]
  - Dysphagia [Not Recovered/Not Resolved]
  - Poriomania [Unknown]
  - Decreased appetite [Recovered/Resolved]
  - Delusion [Unknown]
  - Paranoia [Not Recovered/Not Resolved]
  - Hallucination [Unknown]
  - Somnolence [Recovered/Resolved]
